FAERS Safety Report 9499483 (Version 1)
Quarter: 2013Q3

REPORT INFORMATION
  Report Type: Spontaneous
  Country: DK (occurrence: None)
  Receive Date: 20130903
  Receipt Date: 20130903
  Transmission Date: 20140515
  Serious: Yes (Hospitalization)
  Sender: FDA-Public Use
  Company Number: SYM-2013-10005

PATIENT
  Age: 25 Year
  Sex: Female

DRUGS (1)
  1. FLAGYL [Suspect]
     Indication: BACTERIAL VAGINOSIS
     Route: 048
     Dates: start: 20130716, end: 20130717

REACTIONS (3)
  - Pharyngeal oedema [None]
  - Dysphagia [None]
  - Palatal swelling [None]
